FAERS Safety Report 11247899 (Version 1)
Quarter: 2015Q3

REPORT INFORMATION
  Report Type: Spontaneous
  Country: US (occurrence: US)
  Receive Date: 20150708
  Receipt Date: 20150708
  Transmission Date: 20151125
  Serious: Yes (Other)
  Sender: FDA-Public Use
  Company Number: US-TEVA-576143USA

PATIENT
  Age: 74 Year
  Sex: Female

DRUGS (1)
  1. CIPROFLOXACIN. [Suspect]
     Active Substance: CIPROFLOXACIN
     Indication: SINUSITIS
     Dates: start: 20150517, end: 20150527

REACTIONS (3)
  - Arthralgia [Unknown]
  - Abasia [Unknown]
  - Joint effusion [Unknown]

NARRATIVE: CASE EVENT DATE: 20150529
